FAERS Safety Report 8547682-0 (Version None)
Quarter: 2012Q3

REPORT INFORMATION
  Report Type: 
  Country: None (occurrence: None)
  Receive Date: 20120727
  Receipt Date: 20111122
  Transmission Date: 20120928
  Serious: Yes (Other)
  Sender: FDA-Public Use
  Company Number: US-ASTRAZENECA-2011SE71224

PATIENT
  Age: 34 Year
  Sex: Female
  Weight: 68 kg

DRUGS (9)
  1. SEROQUEL [Suspect]
     Indication: MANIA
     Dosage: 200 MG IN THE MORNING, 100 MG AT NOON AND 200 MG IN THE EVENING
     Route: 048
  2. DEPAKOTE [Concomitant]
  3. ROMERAN [Concomitant]
  4. SEROQUEL [Suspect]
     Indication: AUTISM
     Dosage: 200 MG IN THE MORNING, 100 MG AT NOON AND 200 MG IN THE EVENING
     Route: 048
  5. SEROQUEL [Suspect]
     Indication: MENTAL RETARDATION
     Dosage: 200 MG IN THE MORNING, 100 MG AT NOON AND 200 MG IN THE EVENING
     Route: 048
  6. SYNTHROID [Concomitant]
  7. LIPITOR [Concomitant]
  8. TOPAMAX [Concomitant]
  9. ATIVAN [Concomitant]

REACTIONS (2)
  - CATARACT [None]
  - OFF LABEL USE [None]
